FAERS Safety Report 13080112 (Version 1)
Quarter: 2017Q1

REPORT INFORMATION
  Report Type: Spontaneous
  Country: JP (occurrence: JP)
  Receive Date: 20170103
  Receipt Date: 20170103
  Transmission Date: 20170428
  Serious: Yes (Hospitalization)
  Sender: FDA-Public Use
  Company Number: JP-HQ SPECIALTY-JP-2016INT001004

PATIENT
  Age: 68 Year
  Sex: Male

DRUGS (1)
  1. CISPLATIN. [Suspect]
     Active Substance: CISPLATIN
     Indication: METASTASES TO LYMPH NODES
     Dosage: 100-120 MG/M2, PER WEEK FOR 4 WEEKS
     Route: 013

REACTIONS (1)
  - Osteonecrosis of jaw [Recovered/Resolved]
